FAERS Safety Report 4430631-4 (Version None)
Quarter: 2004Q3

REPORT INFORMATION
  Report Type: 
  Country: None (occurrence: None)
  Receive Date: 20040818
  Receipt Date: 20040803
  Transmission Date: 20050211
  Serious: Yes (Disabling)
  Sender: FDA-Public Use
  Company Number: 04P-083-0269015-00

PATIENT
  Age: 2 Year
  Sex: Male

DRUGS (12)
  1. DEPAKENE [Suspect]
     Indication: MYOCLONIC EPILEPSY
     Dosage: 150 MG, 2 IN 1 D, PER ORAL
     Route: 048
     Dates: start: 19940210, end: 19940601
  2. DEPAKENE [Suspect]
     Indication: MYOCLONIC EPILEPSY
     Dosage: 150 MG, 2 IN 1 D, PER ORAL
     Route: 048
     Dates: start: 19940901, end: 19950301
  3. DEPAKENE [Suspect]
     Indication: DRUG WITHDRAWAL SYNDROME
     Dosage: 500 GM, 1 IN 1 D
     Dates: start: 20020701
  4. VALPROATE MAGNESIUM [Suspect]
     Indication: MYOCLONIC EPILEPSY
     Dosage: 150 MG, 2 IN 1 D, PER ORAL
     Route: 048
     Dates: start: 19940601, end: 19940901
  5. VIGABATRIN [Suspect]
     Indication: MYOCLONIC EPILEPSY
     Dosage: 250 MG, 2 IN 1 D, PER ORAL
     Route: 048
     Dates: start: 19940701, end: 19950101
  6. CLOBAZAM [Suspect]
     Indication: MYOCLONIC EPILEPSY
     Dosage: SEE IMAGE
     Dates: start: 19950101, end: 19950101
  7. CLOBAZAM [Suspect]
     Indication: MYOCLONIC EPILEPSY
     Dosage: SEE IMAGE
     Dates: start: 19960101, end: 19961001
  8. CLOBAZAM [Suspect]
     Indication: MYOCLONIC EPILEPSY
     Dosage: SEE IMAGE
     Dates: start: 19961101
  9. CLOBAZAM [Suspect]
     Indication: MYOCLONIC EPILEPSY
     Dosage: SEE IMAGE
     Dates: start: 20010701
  10. TOPIRMATE [Suspect]
     Indication: MYOCLONIC EPILEPSY
     Dates: start: 19970101, end: 20010601
  11. SULTIAME [Concomitant]
     Indication: MYOCLONIC EPILEPSY
     Dates: start: 19970101, end: 20010601
  12. LAMOTRIGINE [Suspect]
     Indication: MYOCLONIC EPILEPSY
     Dates: start: 19950101, end: 19950201

REACTIONS (6)
  - DRUG WITHDRAWAL SYNDROME [None]
  - EPILEPSY [None]
  - HYPOCALCAEMIA [None]
  - ILLITERACY [None]
  - PSYCHOMOTOR RETARDATION [None]
  - SECONDARY ALDOSTERONISM [None]
